FAERS Safety Report 7641664-9 (Version None)
Quarter: 2011Q3

REPORT INFORMATION
  Report Type: 
  Country: None (occurrence: None)
  Receive Date: 20110728
  Receipt Date: 20110718
  Transmission Date: 20111222
  Serious: Yes (Other)
  Sender: FDA-Public Use
  Company Number: US-GLAXOSMITHKLINE-A0937079A

PATIENT
  Age: 59 Year
  Sex: Female

DRUGS (4)
  1. XELODA [Concomitant]
  2. LEVETIRACETAM [Concomitant]
  3. DEXAMETHASONE [Concomitant]
  4. TYKERB [Suspect]
     Indication: BREAST CANCER
     Dosage: 750MG PER DAY
     Route: 048
     Dates: start: 20110708

REACTIONS (7)
  - DRY SKIN [None]
  - THYROID NEOPLASM [None]
  - SWELLING [None]
  - LACERATION [None]
  - GASTROOESOPHAGEAL REFLUX DISEASE [None]
  - ERUCTATION [None]
  - RASH ERYTHEMATOUS [None]
